FAERS Safety Report 8916103 (Version 1)
Quarter: 2012Q4

REPORT INFORMATION
  Report Type: 
  Country: SI (occurrence: SI)
  Receive Date: 20121120
  Receipt Date: 20121120
  Transmission Date: 20130627
  Serious: Yes (Life-Threatening, Hospitalization)
  Sender: FDA-Public Use
  Company Number: PHHY2012SI105144

PATIENT
  Age: 87 Year
  Sex: Female

DRUGS (2)
  1. NITROFURANTOIN [Suspect]
     Indication: URINARY TRACT INFECTION
     Dosage: 100 mg, BID
  2. AMOXICILLIN/CLAVULANIC ACID [Concomitant]
     Dosage: 1 g, BID

REACTIONS (4)
  - Grand mal convulsion [Unknown]
  - Convulsion [Unknown]
  - Hyponatraemia [Unknown]
  - Polyuria [Recovered/Resolved]
